FAERS Safety Report 20412883 (Version 1)
Quarter: 2022Q1

REPORT INFORMATION
  Report Type: Spontaneous
  Country: US (occurrence: US)
  Receive Date: 20220201
  Receipt Date: 20220201
  Transmission Date: 20220424
  Serious: Yes (Other)
  Sender: FDA-Public Use
  Company Number: US-009507513-2201USA008773

PATIENT
  Sex: Male

DRUGS (1)
  1. BELSOMRA [Suspect]
     Active Substance: SUVOREXANT
     Dosage: 20 MG 2 TIMES A DAY
     Route: 048

REACTIONS (3)
  - Hallucination [Unknown]
  - Erection increased [Unknown]
  - Inappropriate schedule of product administration [Unknown]
